FAERS Safety Report 25127735 (Version 1)
Quarter: 2025Q1

REPORT INFORMATION
  Report Type: Report from Study
  Country: GB (occurrence: None)
  Receive Date: 20250327
  Receipt Date: 20250327
  Transmission Date: 20250409
  Serious: Yes (Hospitalization)
  Sender: Alvotech
  Company Number: GB-ALVOTECHPMS-2025-ALVOTECHPMS-003538

PATIENT
  Age: 40 Year
  Sex: Male

DRUGS (1)
  1. USTEKINUMAB [Suspect]
     Active Substance: USTEKINUMAB
     Indication: Crohn^s disease
     Dosage: 90 MG EVERY 8 WEEKS
     Route: 058
     Dates: end: 20250129

REACTIONS (5)
  - Therapeutic product ineffective [Unknown]
  - Palpitations [Unknown]
  - Hyperhidrosis [Unknown]
  - Pain in extremity [Unknown]
  - Head discomfort [Unknown]

NARRATIVE: CASE EVENT DATE: 20250129
